FAERS Safety Report 10152427 (Version 1)
Quarter: 2014Q2

REPORT INFORMATION
  Report Type: Spontaneous
  Country: US (occurrence: None)
  Receive Date: 20140502
  Receipt Date: 20140502
  Transmission Date: 20141212
  Serious: Yes (Disabling)
  Sender: FDA-Public Use
  Company Number: None

PATIENT
  Age: 41 Year
  Sex: Female
  Weight: 65.77 kg

DRUGS (1)
  1. CIPROFLOXACIN 500MG [Suspect]
     Indication: URINARY TRACT INFECTION
     Dosage: 1 PILL TWICE DAILY TAKEN BY MOUTH
     Route: 048
     Dates: start: 20140501, end: 20140501

REACTIONS (10)
  - Dizziness [None]
  - Anxiety [None]
  - Tremor [None]
  - Hypoaesthesia [None]
  - Headache [None]
  - Nausea [None]
  - Back pain [None]
  - Visual impairment [None]
  - Paraesthesia [None]
  - Asthenopia [None]
